FAERS Safety Report 6079250-7 (Version None)
Quarter: 2009Q1

REPORT INFORMATION
  Report Type: 
  Country: None (occurrence: None)
  Receive Date: 20090216
  Receipt Date: 20090212
  Transmission Date: 20090719
  Serious: Yes (Death)
  Sender: FDA-Public Use
  Company Number: PHHY2009MX05275

PATIENT
  Age: 71 Year
  Sex: Female

DRUGS (2)
  1. STALEVO 100 [Suspect]
     Indication: PARKINSON'S DISEASE
     Dosage: 2 TABLETS (100/25/200 MG) PER DAY
     Route: 048
     Dates: start: 20061201
  2. TRILEPTAL [Suspect]
     Dosage: 2 TABLETS (300 MG) PER DAY
     Route: 048

REACTIONS (1)
  - CARDIAC ARREST [None]
